FAERS Safety Report 19889180 (Version 2)
Quarter: 2021Q4

REPORT INFORMATION
  Report Type: Spontaneous
  Country: BE (occurrence: BE)
  Receive Date: 20210927
  Receipt Date: 20211203
  Transmission Date: 20220303
  Serious: Yes (Hospitalization, Other)
  Sender: FDA-Public Use
  Company Number: BE-MLMSERVICE-20210913-3103963-1

PATIENT

DRUGS (4)
  1. PROPRANOLOL HYDROCHLORIDE [Suspect]
     Active Substance: PROPRANOLOL HYDROCHLORIDE
     Indication: Long QT syndrome
     Route: 048
     Dates: start: 2020, end: 2020
  2. AMIKACIN [Concomitant]
     Active Substance: AMIKACIN
     Indication: Amniotic cavity infection
     Route: 042
     Dates: start: 2020
  3. SURFACTANT [Concomitant]
     Indication: Product used for unknown indication
     Route: 065
     Dates: start: 2020
  4. AMOXICILLIN [Concomitant]
     Active Substance: AMOXICILLIN
     Indication: Amniotic cavity infection
     Route: 042
     Dates: start: 2020

REACTIONS (4)
  - Necrotising enterocolitis neonatal [Unknown]
  - Product administered to patient of inappropriate age [Unknown]
  - Product use in unapproved indication [Unknown]
  - Off label use [Unknown]

NARRATIVE: CASE EVENT DATE: 20200101
